FAERS Safety Report 9352421 (Version 2)
Quarter: 2013Q3

REPORT INFORMATION
  Report Type: Report from Study
  Country: US (occurrence: US)
  Receive Date: 20130617
  Receipt Date: 20130710
  Transmission Date: 20140515
  Serious: Yes (Hospitalization)
  Sender: FDA-Public Use
  Company Number: US-US-EMD SERONO, INC.-7217580

PATIENT
  Age: 33 Year
  Sex: Female

DRUGS (3)
  1. REBIF [Suspect]
     Indication: MULTIPLE SCLEROSIS
     Route: 058
     Dates: start: 2008
  2. REBIF [Suspect]
     Route: 058
     Dates: start: 20100121, end: 20121124
  3. REBIF [Suspect]
     Route: 058
     Dates: start: 20130523, end: 20130603

REACTIONS (1)
  - Multiple sclerosis relapse [Recovering/Resolving]
